FAERS Safety Report 20627454 (Version 1)
Quarter: 2022Q1

REPORT INFORMATION
  Report Type: Spontaneous
  Country: JP (occurrence: JP)
  Receive Date: 20220323
  Receipt Date: 20220323
  Transmission Date: 20220424
  Serious: Yes (Other)
  Sender: FDA-Public Use
  Company Number: JP-FERRINGPH-2022FE01345

PATIENT

DRUGS (1)
  1. DEGARELIX [Suspect]
     Active Substance: DEGARELIX
     Indication: Product used for unknown indication
     Route: 065

REACTIONS (3)
  - Syncope [Unknown]
  - Blood pressure decreased [Unknown]
  - Pain [Unknown]
